FAERS Safety Report 18005232 (Version 18)
Quarter: 2021Q1

REPORT INFORMATION
  Report Type: Report from Study
  Country: None (occurrence: ES)
  Receive Date: 20200710
  Receipt Date: 20210212
  Transmission Date: 20210419
  Serious: Yes (Hospitalization, Other)
  Sender: FDA-Public Use
  Company Number: ES-ABBVIE-20K-144-3476658-00

PATIENT
  Age: 72 Year
  Sex: Female
  Weight: 52 kg

DRUGS (8)
  1. XADAGO [Concomitant]
     Active Substance: SAFINAMIDE MESYLATE
     Indication: PRODUCT USED FOR UNKNOWN INDICATION
     Dates: start: 2020
  2. DUODOPA [Suspect]
     Active Substance: CARBIDOPA\LEVODOPA
     Indication: PARKINSON^S DISEASE
     Route: 050
     Dates: start: 20190117
  3. QUETIAPINE. [Suspect]
     Active Substance: QUETIAPINE
     Indication: PRODUCT USED FOR UNKNOWN INDICATION
     Dosage: AT LUNCH AND DINNER
     Route: 065
     Dates: start: 20200901, end: 202009
  4. QUETIAPINE. [Suspect]
     Active Substance: QUETIAPINE
     Dosage: DOSE INCREASED, 1?2?2
     Route: 065
     Dates: start: 202012
  5. ESCITALOPRAM [Concomitant]
     Active Substance: ESCITALOPRAM OXALATE
     Indication: PRODUCT USED FOR UNKNOWN INDICATION
  6. DUODOPA [Suspect]
     Active Substance: CARBIDOPA\LEVODOPA
     Dosage: DOSE DECREASE
     Route: 050
     Dates: start: 2020
  7. QUETIAPINE. [Suspect]
     Active Substance: QUETIAPINE
     Dosage: DOSE INCREASED, 1/2?1?1
     Route: 065
     Dates: start: 2020, end: 202012
  8. QUETIAPINE. [Suspect]
     Active Substance: QUETIAPINE
     Dosage: DOSE DECREASED
     Route: 065
     Dates: start: 202009, end: 2020

REACTIONS (16)
  - Hip fracture [Not Recovered/Not Resolved]
  - Obsessive-compulsive disorder [Not Recovered/Not Resolved]
  - Condition aggravated [Not Recovered/Not Resolved]
  - Compulsive shopping [Not Recovered/Not Resolved]
  - Delusion [Not Recovered/Not Resolved]
  - Mania [Not Recovered/Not Resolved]
  - Disorientation [Unknown]
  - Cognitive disorder [Recovered/Resolved]
  - Fall [Unknown]
  - Depression [Not Recovered/Not Resolved]
  - Somnolence [Unknown]
  - Freezing phenomenon [Not Recovered/Not Resolved]
  - Cognitive disorder [Not Recovered/Not Resolved]
  - Hallucination [Not Recovered/Not Resolved]
  - Memory impairment [Unknown]
  - Fatigue [Unknown]

NARRATIVE: CASE EVENT DATE: 2020
